FAERS Safety Report 13947956 (Version 4)
Quarter: 2022Q3

REPORT INFORMATION
  Report Type: Spontaneous
  Country: US (occurrence: US)
  Receive Date: 20170908
  Receipt Date: 20220906
  Transmission Date: 20221027
  Serious: Yes (Death, Other)
  Sender: FDA-Public Use
  Company Number: US-PFIZER INC-2017386765

PATIENT
  Age: 77 Year
  Sex: Male

DRUGS (1)
  1. XELJANZ XR [Suspect]
     Active Substance: TOFACITINIB CITRATE
     Indication: Rheumatoid arthritis
     Dosage: 11 MG

REACTIONS (8)
  - Death [Fatal]
  - Parkinson^s disease [Unknown]
  - Cataract [Unknown]
  - Tremor [Unknown]
  - Arthralgia [Unknown]
  - Arthralgia [Unknown]
  - Skin lesion [Unknown]
  - Emotional disorder [Unknown]
